FAERS Safety Report 5192899-9 (Version None)
Quarter: 2006Q4

REPORT INFORMATION
  Report Type: 
  Country: None (occurrence: None)
  Receive Date: 20061228
  Receipt Date: 20060209
  Transmission Date: 20070319
  Serious: No
  Sender: FDA-Public Use
  Company Number: US-GLAXOSMITHKLINE-A0593075A

PATIENT
  Sex: Female

DRUGS (3)
  1. FLONASE [Suspect]
     Dosage: 2SPR PER DAY
     Route: 045
     Dates: start: 20030101
  2. ADVAIR DISKUS 100/50 [Concomitant]
  3. ASTELIN [Concomitant]

REACTIONS (1)
  - DYSPHONIA [None]
